FAERS Safety Report 19774197 (Version 1)
Quarter: 2021Q3

REPORT INFORMATION
  Report Type: Spontaneous
  Country: BR (occurrence: BR)
  Receive Date: 20210901
  Receipt Date: 20210901
  Transmission Date: 20211014
  Serious: Yes (Other)
  Sender: FDA-Public Use
  Company Number: BR-ABBVIE-21P-020-3960943-00

PATIENT
  Age: 38 Year
  Sex: Male
  Weight: 80 kg

DRUGS (3)
  1. DIVALCON ER [Suspect]
     Active Substance: DIVALPROEX SODIUM
     Indication: MOOD SWINGS
  2. DIVALCON ER [Suspect]
     Active Substance: DIVALPROEX SODIUM
     Indication: BIPOLAR DISORDER
     Dosage: DD: 750MG;ONE 500MG DOSE AND ONE 250MG DOSE A DAY
     Route: 048
     Dates: start: 2008
  3. DIVALCON ER [Suspect]
     Active Substance: DIVALPROEX SODIUM
     Indication: HYPOMANIA

REACTIONS (7)
  - Libido decreased [Not Recovered/Not Resolved]
  - Spermatozoa progressive motility decreased [Unknown]
  - Product administration interrupted [Recovered/Resolved]
  - Azoospermia [Unknown]
  - Ill-defined disorder [Unknown]
  - Varicocele [Unknown]
  - Spermatozoa morphology abnormal [Unknown]

NARRATIVE: CASE EVENT DATE: 2015
